FAERS Safety Report 8341173-8 (Version None)
Quarter: 2012Q2

REPORT INFORMATION
  Report Type: 
  Country: None (occurrence: None)
  Receive Date: 20120507
  Receipt Date: 20120501
  Transmission Date: 20120825
  Serious: No
  Sender: FDA-Public Use
  Company Number: US-PFIZER INC-2012107750

PATIENT
  Sex: Female
  Weight: 63 kg

DRUGS (3)
  1. PREMARIN [Suspect]
     Indication: VAGINAL DISORDER
     Dosage: UNK, 2X/WEEK
     Route: 067
     Dates: start: 20120101, end: 20120401
  2. METOPROLOL [Concomitant]
     Indication: CARDIAC DISORDER
     Dosage: 50 MG, DAILY
  3. DIOVAN HCT [Concomitant]
     Indication: CARDIAC DISORDER
     Dosage: 160 MG, DAILY

REACTIONS (1)
  - DIZZINESS [None]
